FAERS Safety Report 5104426-2 (Version None)
Quarter: 2006Q3

REPORT INFORMATION
  Report Type: 
  Country: None (occurrence: None)
  Receive Date: 20060914
  Receipt Date: 20060831
  Transmission Date: 20061208
  Serious: Yes (Hospitalization, Other)
  Sender: FDA-Public Use
  Company Number: US-AMGEN-US192085

PATIENT
  Sex: Female

DRUGS (2)
  1. ENBREL [Suspect]
     Indication: PSORIATIC ARTHROPATHY
     Route: 058
     Dates: start: 20031101
  2. ENBREL [Suspect]
     Indication: PSORIASIS

REACTIONS (7)
  - BACK PAIN [None]
  - CATARACT [None]
  - CONDITION AGGRAVATED [None]
  - FALL [None]
  - HERPES ZOSTER [None]
  - PSORIASIS [None]
  - VISION BLURRED [None]
